FAERS Safety Report 21936160 (Version 1)
Quarter: 2023Q1

REPORT INFORMATION
  Report Type: Spontaneous
  Country: FR (occurrence: FR)
  Receive Date: 20230201
  Receipt Date: 20230201
  Transmission Date: 20230417
  Serious: Yes (Life-Threatening, Hospitalization)
  Sender: FDA-Public Use
  Company Number: FR-ELI_LILLY_AND_COMPANY-FR202301014100

PATIENT
  Age: 53 Year
  Sex: Female

DRUGS (6)
  1. INSULIN GLARGINE [Suspect]
     Active Substance: INSULIN GLARGINE
     Indication: Gestational diabetes
     Dosage: UNK, UNKNOWN
     Dates: start: 2020
  2. INSULIN GLARGINE [Suspect]
     Active Substance: INSULIN GLARGINE
     Indication: Gestational diabetes
     Dosage: UNK, UNKNOWN
     Dates: start: 2020
  3. INSULIN GLARGINE [Suspect]
     Active Substance: INSULIN GLARGINE
     Dosage: UNK, UNKNOWN
     Dates: start: 2020
  4. INSULIN GLARGINE [Suspect]
     Active Substance: INSULIN GLARGINE
     Dosage: UNK, UNKNOWN
     Dates: start: 2020
  5. TRULICITY [Concomitant]
     Active Substance: DULAGLUTIDE
     Indication: Gestational diabetes
     Dosage: UNK, UNKNOWN
     Route: 065
     Dates: start: 2020
  6. METFORMIN [Concomitant]
     Active Substance: METFORMIN HYDROCHLORIDE
     Indication: Product used for unknown indication

REACTIONS (12)
  - COVID-19 [Unknown]
  - Sepsis [Unknown]
  - Ovarian cancer [Recovered/Resolved]
  - Uterine cancer [Recovered/Resolved]
  - Post procedural complication [Unknown]
  - Pulmonary embolism [Unknown]
  - Thrombosis [Unknown]
  - Vocal cord paralysis [Unknown]
  - Nosocomial infection [Unknown]
  - Fatigue [Unknown]
  - Pain [Unknown]
  - Inappropriate schedule of product administration [Unknown]

NARRATIVE: CASE EVENT DATE: 20201001
